FAERS Safety Report 5298920-1 (Version None)
Quarter: 2007Q2

REPORT INFORMATION
  Report Type: 
  Country: None (occurrence: None)
  Receive Date: 20070417
  Receipt Date: 20070404
  Transmission Date: 20071010
  Serious: Yes (Other)
  Sender: FDA-Public Use
  Company Number: PHEH2007US04093

PATIENT
  Age: 46 Year
  Sex: Female

DRUGS (8)
  1. ZELNORM [Suspect]
     Indication: IRRITABLE BOWEL SYNDROME
     Dosage: 6 MG, QD
     Route: 048
  2. ZELNORM [Suspect]
     Dosage: 6 MG, QD
     Route: 048
     Dates: start: 20060801
  3. ZELNORM [Suspect]
     Dosage: 6 MG, QD
     Route: 048
  4. ZELNORM [Suspect]
     Dosage: 6 MG, QD
     Route: 048
     Dates: start: 20060801
  5. CYMBALTA [Concomitant]
  6. WELLBUTRIN XL [Concomitant]
  7. KLONOPIN [Concomitant]
  8. ASPIRIN [Concomitant]
     Dosage: 81 MG, UNK
     Route: 048

REACTIONS (1)
  - DEEP VEIN THROMBOSIS [None]
